FAERS Safety Report 15119643 (Version 3)
Quarter: 2018Q4

REPORT INFORMATION
  Report Type: Spontaneous
  Country: BE (occurrence: BE)
  Receive Date: 20180709
  Receipt Date: 20181024
  Transmission Date: 20190204
  Serious: Yes (Other)
  Sender: FDA-Public Use
  Company Number: BE-ASTELLAS-2018US030077

PATIENT
  Age: 50 Year
  Sex: Male

DRUGS (10)
  1. PROGRAFT [Suspect]
     Active Substance: TACROLIMUS
     Dosage: UNK UNK, TWICE DAILY (2+1.5 MG/D)
     Route: 065
     Dates: start: 201801
  2. PROGRAFT [Suspect]
     Active Substance: TACROLIMUS
     Dosage: UNK UNK, TWICE DAILY (2+1 MG/D)
     Route: 065
     Dates: start: 201701
  3. PROGRAFT [Suspect]
     Active Substance: TACROLIMUS
     Dosage: 2 MG, TWICE DAILY (2+2 MG/D)
     Route: 065
     Dates: start: 201807
  4. MYCOPHENOLATE MOFETIL. [Concomitant]
     Active Substance: MYCOPHENOLATE MOFETIL
     Indication: HEART TRANSPLANT
     Dosage: UNK UNK, UNKNOWN FREQ.
     Route: 065
  5. PROGRAFT [Suspect]
     Active Substance: TACROLIMUS
     Dosage: 3 MG, TWICE DAILY (3+3 MG/D)
     Route: 065
     Dates: start: 200903
  6. PROGRAFT [Suspect]
     Active Substance: TACROLIMUS
     Indication: HEART TRANSPLANT
     Dosage: 2 MG, TWICE DAILY (2+2 MG/D)
     Route: 065
     Dates: start: 20080725
  7. METHYLPREDNISOLONE. [Concomitant]
     Active Substance: METHYLPREDNISOLONE
     Indication: HEART TRANSPLANT
     Dosage: UNK UNK, UNKNOWN FREQ. (HIGH DOSE)
     Route: 065
  8. PROGRAFT [Suspect]
     Active Substance: TACROLIMUS
     Dosage: 2 MG, TWICE DAILY (2+2 MG/D)
     Route: 065
     Dates: start: 201312
  9. PROGRAFT [Suspect]
     Active Substance: TACROLIMUS
     Dosage: UNK UNK, TWICE DAILY (3+2 MG/D)
     Route: 065
     Dates: start: 201207
  10. PROGRAFT [Suspect]
     Active Substance: TACROLIMUS
     Dosage: UNK UNK, TWICE DAILY (3+2 MG/D)
     Route: 065
     Dates: start: 200809

REACTIONS (5)
  - Pneumonia [Unknown]
  - Atrial fibrillation [Recovered/Resolved]
  - Right ventricular failure [Recovered/Resolved]
  - Pulmonary haemorrhage [Recovered/Resolved]
  - Acute kidney injury [Recovered/Resolved]
